FAERS Safety Report 18388205 (Version 2)
Quarter: 2020Q4

REPORT INFORMATION
  Report Type: Spontaneous
  Country: US (occurrence: US)
  Receive Date: 20201015
  Receipt Date: 20201026
  Transmission Date: 20210114
  Serious: No
  Sender: FDA-Public Use
  Company Number: US-FERRINGPH-2020FE07017

PATIENT
  Age: 17 Year
  Sex: Male

DRUGS (1)
  1. STIMATE [Suspect]
     Active Substance: DESMOPRESSIN ACETATE
     Indication: FACTOR VIII DEFICIENCY
     Dosage: 1 SPRAY AS NEEDED
     Route: 045
     Dates: start: 20140404, end: 20190625

REACTIONS (2)
  - Recalled product administered [Unknown]
  - Out of specification product use [Unknown]
